FAERS Safety Report 9564931 (Version 2)
Quarter: 2013Q4

REPORT INFORMATION
  Report Type: Spontaneous
  Country: JP (occurrence: JP)
  Receive Date: 20130930
  Receipt Date: 20131016
  Transmission Date: 20140711
  Serious: Yes (Hospitalization)
  Sender: FDA-Public Use
  Company Number: PHHY2013JP108044

PATIENT
  Age: 61 Year
  Sex: Female
  Weight: 66 kg

DRUGS (3)
  1. NEORAL [Suspect]
     Indication: RHEUMATIC DISORDER
     Dosage: 75 MG, DAILY (50 MG IN THE MORNING AND 25 MG IN THE EVENING)
     Route: 048
  2. NEORAL [Suspect]
     Indication: OFF LABEL USE
  3. PREDONINE [Suspect]
     Route: 048

REACTIONS (4)
  - Interstitial lung disease [Unknown]
  - Tachycardia [Recovered/Resolved]
  - Nausea [Recovered/Resolved]
  - Immunosuppressant drug level decreased [Unknown]
